FAERS Safety Report 10470723 (Version 1)
Quarter: 2014Q3

REPORT INFORMATION
  Report Type: Report from Study
  Country: US (occurrence: US)
  Receive Date: 20140923
  Receipt Date: 20140923
  Transmission Date: 20150326
  Serious: Yes (Hospitalization)
  Sender: FDA-Public Use
  Company Number: US-ABBVIE-14P-163-1284881-00

PATIENT
  Age: 40 Year
  Sex: Male
  Weight: 71.73 kg

DRUGS (3)
  1. MARINOL [Suspect]
     Active Substance: DRONABINOL
     Indication: NAUSEA
     Dates: start: 20140903
  2. PREDNISONE. [Concomitant]
     Active Substance: PREDNISONE
     Indication: LUNG INFECTION
     Dates: start: 20140806
  3. MARINOL [Suspect]
     Active Substance: DRONABINOL
     Indication: CYSTIC FIBROSIS
     Dates: end: 20140902

REACTIONS (4)
  - Dyspnoea [Recovered/Resolved]
  - Drug effect incomplete [Not Recovered/Not Resolved]
  - Pulmonary oedema [Recovered/Resolved]
  - Lung infection [Recovered/Resolved]

NARRATIVE: CASE EVENT DATE: 201408
